FAERS Safety Report 23113004 (Version 1)
Quarter: 2023Q4

REPORT INFORMATION
  Report Type: Spontaneous
  Country: CA (occurrence: CA)
  Receive Date: 20231027
  Receipt Date: 20231027
  Transmission Date: 20240110
  Serious: Yes (Hospitalization)
  Sender: FDA-Public Use
  Company Number: CA-BAYER-2023A128274

PATIENT
  Age: 68 Year
  Sex: Male

DRUGS (2)
  1. XARELTO [Interacting]
     Active Substance: RIVAROXABAN
     Indication: Pulmonary embolism
     Dosage: UNK
     Route: 048
     Dates: start: 202012
  2. ERLEADA [Interacting]
     Active Substance: APALUTAMIDE
     Indication: Prostate cancer metastatic
     Dosage: 240 MG, QD
     Route: 048

REACTIONS (2)
  - Hospitalisation [Unknown]
  - Drug interaction [Unknown]
